FAERS Safety Report 4403628-8 (Version None)
Quarter: 2004Q3

REPORT INFORMATION
  Report Type: 
  Country: None (occurrence: None)
  Receive Date: 20040719
  Receipt Date: 20040706
  Transmission Date: 20050211
  Serious: Yes (Other)
  Sender: FDA-Public Use
  Company Number: 2004041000

PATIENT
  Age: 53 Year
  Sex: Male
  Weight: 65.7716 kg

DRUGS (5)
  1. RELPAX [Suspect]
     Indication: MIGRAINE
     Dosage: 40 MG (40MG, AS NEEDED); ORAL (SEE IMAGE)
     Route: 048
     Dates: start: 20040524, end: 20040702
  2. ZYRTEC [Suspect]
     Indication: NASOPHARYNGITIS
     Dosage: UNK; ORAL (SEE IMAGE)
     Route: 048
     Dates: start: 20040601, end: 20040627
  3. CAFFEINE (CAFFEINE) [Suspect]
     Indication: ILL-DEFINED DISORDER
     Dosage: UNK, UNKNOWN (SEE IMAGE)
     Route: 065
  4. CELECOXIB (CELECOXIB) [Suspect]
     Indication: BACK PAIN
     Dosage: UNK; ORAL (SEE IMAGE)
     Route: 048
     Dates: end: 20040627
  5. ACETYLSALICYLIC ACID SRT [Suspect]
     Indication: ILL-DEFINED DISORDER
     Dosage: UNK; ORAL (SEE IMAGE)
     Route: 048
     Dates: end: 20040627

REACTIONS (11)
  - ASTHENIA [None]
  - BACK PAIN [None]
  - CHEST DISCOMFORT [None]
  - DEPENDENCE [None]
  - EPISTAXIS [None]
  - HAEMOPTYSIS [None]
  - MIGRAINE [None]
  - NASOPHARYNGITIS [None]
  - PSYCHOMOTOR HYPERACTIVITY [None]
  - SOMNOLENCE [None]
  - THROAT TIGHTNESS [None]
